FAERS Safety Report 9842928 (Version 1)
Quarter: 2014Q1

REPORT INFORMATION
  Report Type: Spontaneous
  Country: IT (occurrence: IT)
  Receive Date: 20140124
  Receipt Date: 20140124
  Transmission Date: 20141002
  Serious: Yes (Other)
  Sender: FDA-Public Use
  Company Number: IT-FRI-1000052991

PATIENT
  Age: 70 Year
  Sex: Female

DRUGS (3)
  1. NEBIVOLOL [Suspect]
     Dosage: 5 MG
     Route: 048
     Dates: start: 20130101
  2. LERCANIDIPINA [Concomitant]
     Dosage: 10 MG
     Route: 048
     Dates: start: 20130101
  3. DAPAROX [Concomitant]
     Route: 048

REACTIONS (1)
  - Presyncope [Recovering/Resolving]
